FAERS Safety Report 22953926 (Version 4)
Quarter: 2023Q4

REPORT INFORMATION
  Report Type: Spontaneous
  Country: US (occurrence: US)
  Receive Date: 20230918
  Receipt Date: 20231103
  Transmission Date: 20240109
  Serious: Yes (Hospitalization, Other)
  Sender: FDA-Public Use
  Company Number: US-PFIZER INC-202300298372

PATIENT
  Age: 40 Year
  Sex: Male
  Weight: 90.72 kg

DRUGS (1)
  1. GENOTROPIN [Suspect]
     Active Substance: SOMATROPIN
     Indication: Hypopituitarism
     Dosage: 0.4 MG, DAILY (SUBCUTANEOUS INJECTION EVERY DAY)
     Route: 058
     Dates: start: 202206

REACTIONS (5)
  - Seizure [Recovering/Resolving]
  - Mental status changes [Recovering/Resolving]
  - Body temperature abnormal [Unknown]
  - Device information output issue [Unknown]
  - Device use error [Unknown]
